FAERS Safety Report 18673271 (Version 3)
Quarter: 2021Q2

REPORT INFORMATION
  Report Type: Spontaneous
  Country: US (occurrence: US)
  Receive Date: 20201229
  Receipt Date: 20210405
  Transmission Date: 20210717
  Serious: Yes (Hospitalization, Disabling)
  Sender: FDA-Public Use
  Company Number: US-JNJFOC-20201244259

PATIENT
  Age: 25 Year
  Sex: Male

DRUGS (2)
  1. PREDNISONE. [Concomitant]
     Active Substance: PREDNISONE
     Indication: CROHN^S DISEASE
     Route: 065
  2. REMICADE [Suspect]
     Active Substance: INFLIXIMAB
     Indication: CROHN^S DISEASE
     Dosage: TOTAL NUMBER OF INFUSION APPROXIMATELY: 10.
     Route: 042

REACTIONS (1)
  - Tuberculosis [Recovering/Resolving]
